FAERS Safety Report 7594912-8 (Version None)
Quarter: 2011Q2

REPORT INFORMATION
  Report Type: 
  Country: None (occurrence: None)
  Receive Date: 20110615
  Receipt Date: 20100622
  Transmission Date: 20111010
  Serious: Yes (Hospitalization)
  Sender: FDA-Public Use
  Company Number: WAES 1006USA03622

PATIENT
  Age: 54 Year
  Sex: Female

DRUGS (1)
  1. COZAAR [Suspect]
     Indication: HYPERTENSION
     Dosage: 100 MG/DAILY/PO, 25 MG/DAILY/PO
     Route: 048
     Dates: start: 20100530, end: 20100531

REACTIONS (2)
  - MYALGIA [None]
  - FATIGUE [None]
